FAERS Safety Report 10008860 (Version 1)
Quarter: 2014Q1

REPORT INFORMATION
  Report Type: Spontaneous
  Country: BE (occurrence: BE)
  Receive Date: 20140313
  Receipt Date: 20140313
  Transmission Date: 20141002
  Serious: Yes (Hospitalization)
  Sender: FDA-Public Use
  Company Number: PHHY2014BE028151

PATIENT
  Age: 81 Year
  Sex: Male

DRUGS (7)
  1. PRAMIPEXOLE [Suspect]
     Indication: PARKINSON^S DISEASE
     Dosage: 2.1 MG DAILY
  2. PRAMIPEXOLE [Suspect]
     Dosage: 0.350 MG, TID
  3. VENLAFAXINE [Suspect]
     Dosage: 150 MG
  4. ESCITALOPRAM [Suspect]
     Dosage: 10 MG
  5. LEVODOPA [Suspect]
     Indication: PARKINSON^S DISEASE
     Dosage: 250 MG DAILY
  6. LEVODOPA [Suspect]
     Dosage: 125 MG, Q4H
  7. LEVODOPA [Suspect]
     Dosage: 125 MG, QID

REACTIONS (5)
  - Neuroleptic malignant syndrome [Recovered/Resolved]
  - Altered state of consciousness [Recovered/Resolved]
  - Hyperthermia [Recovered/Resolved]
  - Hypertonia [Recovered/Resolved]
  - Drug withdrawal syndrome [Recovered/Resolved]
